FAERS Safety Report 23674426 (Version 1)
Quarter: 2024Q1

REPORT INFORMATION
  Report Type: Spontaneous
  Country: NL (occurrence: NL)
  Receive Date: 20240326
  Receipt Date: 20240326
  Transmission Date: 20240409
  Serious: Yes (Other)
  Sender: FDA-Public Use
  Company Number: NL-AMGEN-NLDSP2024056558

PATIENT
  Age: 67 Year
  Sex: Female

DRUGS (9)
  1. BEVACIZUMAB [Suspect]
     Active Substance: BEVACIZUMAB
     Indication: Non-small cell lung cancer
     Dosage: UNK
     Route: 065
  2. ATEZOLIZUMAB [Concomitant]
     Active Substance: ATEZOLIZUMAB
     Indication: Non-small cell lung cancer
     Dosage: UNK
     Route: 065
  3. PACLITAXEL [Concomitant]
     Active Substance: PACLITAXEL
     Indication: Non-small cell lung cancer
     Dosage: UNK
     Route: 065
  4. CARBOPLATIN [Concomitant]
     Active Substance: CARBOPLATIN
     Indication: Non-small cell lung cancer
     Dosage: UNK
     Route: 065
  5. AMLODIPINE [Concomitant]
     Active Substance: AMLODIPINE BESYLATE
     Indication: Hypertension
     Dosage: UNK
     Route: 065
  6. METOPROLOL [Concomitant]
     Active Substance: METOPROLOL
     Indication: Hypertension
     Dosage: UNK
     Route: 065
  7. ALDESLEUKIN [Concomitant]
     Active Substance: ALDESLEUKIN
     Dosage: 600000 INTERNATIONAL UNIT/KILOGRAM, Q8H
     Route: 042
  8. CYCLOPHOSPHAMIDE [Concomitant]
     Active Substance: CYCLOPHOSPHAMIDE
     Dosage: 60 MILLIGRAM/KILOGRAM (2 DAYS)
     Route: 065
  9. FLUDARABINE [Concomitant]
     Active Substance: FLUDARABINE PHOSPHATE
     Dosage: 25 MILLIGRAM/SQ. METER (5 DAYS)
     Route: 065

REACTIONS (5)
  - Non-small cell lung cancer metastatic [Unknown]
  - Pulmonary oedema [Recovered/Resolved]
  - Capillary leak syndrome [Recovered/Resolved]
  - Troponin T increased [Recovered/Resolved]
  - N-terminal prohormone brain natriuretic peptide increased [Recovered/Resolved]
